FAERS Safety Report 5688980-8 (Version None)
Quarter: 2008Q1

REPORT INFORMATION
  Report Type: 
  Country: None (occurrence: None)
  Receive Date: 20080331
  Receipt Date: 20080318
  Transmission Date: 20080703
  Serious: Yes (Death)
  Sender: FDA-Public Use
  Company Number: A0646248A

PATIENT
  Age: 50 Year
  Sex: Male
  Weight: 90.9 kg

DRUGS (4)
  1. PAXIL CR [Suspect]
     Indication: DEPRESSION
     Dosage: 25MG IN THE MORNING
     Route: 048
     Dates: start: 20050209
  2. PAXIL [Suspect]
     Indication: DEPRESSION
     Route: 048
     Dates: start: 20050207, end: 20050209
  3. BUSPIRONE HCL [Suspect]
     Indication: DRUG USE FOR UNKNOWN INDICATION
     Dosage: 15MG AS DIRECTED
     Route: 048
     Dates: start: 20050209
  4. RISPERDAL [Suspect]
     Indication: DRUG USE FOR UNKNOWN INDICATION
     Dosage: .5MG THREE TIMES PER DAY
     Route: 048
     Dates: start: 20050207, end: 20050209

REACTIONS (4)
  - COMPLETED SUICIDE [None]
  - FEELING OF DESPAIR [None]
  - INJURY [None]
  - INSOMNIA [None]
